FAERS Safety Report 4894534-3 (Version None)
Quarter: 2006Q1

REPORT INFORMATION
  Report Type: 
  Country: None (occurrence: None)
  Receive Date: 20060127
  Receipt Date: 20051202
  Transmission Date: 20060701
  Serious: Yes (Other)
  Sender: FDA-Public Use
  Company Number: CHWYE207106DEC05

PATIENT
  Sex: Male

DRUGS (3)
  1. ENBREL [Suspect]
     Indication: RHEUMATOID ARTHRITIS
     Dosage: UNKNOWN
     Route: 065
     Dates: start: 20050101, end: 20050816
  2. PREDNISONE [Concomitant]
     Route: 065
  3. DEROXAT [Concomitant]
     Route: 065
     Dates: start: 20050601

REACTIONS (8)
  - ALOPECIA EFFLUVIUM [None]
  - ERYTHEMA [None]
  - LEUKOPENIA [None]
  - PRURITUS [None]
  - PURPURA [None]
  - RASH [None]
  - SKIN EXFOLIATION [None]
  - TOXIC SKIN ERUPTION [None]
